FAERS Safety Report 10042096 (Version 1)
Quarter: 2014Q1

REPORT INFORMATION
  Report Type: Spontaneous
  Country: AU (occurrence: None)
  Receive Date: 20140325
  Receipt Date: 20140325
  Transmission Date: 20141002
  Serious: Yes (Hospitalization)
  Sender: FDA-Public Use
  Company Number: 20133568

PATIENT
  Age: 62 Year
  Sex: Male

DRUGS (4)
  1. ACEON [Suspect]
     Indication: PRODUCT USED FOR UNKNOWN INDICATION
     Route: 048
     Dates: start: 19991206, end: 19991228
  2. TENORMIN (ATENOLOL) [Concomitant]
  3. ASPIRINE (ACETYLSALICYLIC ACID) [Concomitant]
  4. LIPITOR (ATORVASTATIN CALCIUM) [Concomitant]

REACTIONS (7)
  - Liver function test abnormal [None]
  - Dermatitis bullous [None]
  - Rash morbilliform [None]
  - Fatigue [None]
  - Renal failure acute [None]
  - Myalgia [None]
  - Thrombocytopenia [None]
